FAERS Safety Report 9860848 (Version 1)
Quarter: 2014Q1

REPORT INFORMATION
  Report Type: Spontaneous
  Country: US (occurrence: None)
  Receive Date: 20140131
  Receipt Date: 20140131
  Transmission Date: 20141002
  Serious: No
  Sender: FDA-Public Use
  Company Number: None

PATIENT
  Age: 66 Year
  Sex: Female
  Weight: 77.11 kg

DRUGS (1)
  1. ABILIFY [Suspect]
     Indication: DEPRESSION
     Route: 048
     Dates: start: 20140122, end: 20140129

REACTIONS (10)
  - Vision blurred [None]
  - Constipation [None]
  - Flatulence [None]
  - Anxiety [None]
  - Insomnia [None]
  - Tremor [None]
  - Attention deficit/hyperactivity disorder [None]
  - Anger [None]
  - Crying [None]
  - Condition aggravated [None]
